FAERS Safety Report 12398792 (Version 1)
Quarter: 2016Q2

REPORT INFORMATION
  Report Type: Spontaneous
  Country: US (occurrence: US)
  Receive Date: 20160524
  Receipt Date: 20160524
  Transmission Date: 20160815
  Serious: No
  Sender: FDA-Public Use
  Company Number: US-PFIZER INC-2016272592

PATIENT
  Age: 90 Year
  Sex: Female

DRUGS (1)
  1. CELEBREX [Suspect]
     Active Substance: CELECOXIB
     Dosage: TOOK 200MG AS DIRECTED BY HER DOCTOR

REACTIONS (3)
  - Dizziness [Unknown]
  - Hypoacusis [Unknown]
  - Feeling drunk [Unknown]
